FAERS Safety Report 17829419 (Version 2)
Quarter: 2020Q2

REPORT INFORMATION
  Report Type: Spontaneous
  Country: DE (occurrence: DE)
  Receive Date: 20200527
  Receipt Date: 20200610
  Transmission Date: 20200714
  Serious: Yes (Other)
  Sender: FDA-Public Use
  Company Number: DE-ROCHE-2562106

PATIENT
  Age: 47 Year
  Sex: Female
  Weight: 52 kg

DRUGS (3)
  1. COTELLIC [Suspect]
     Active Substance: COBIMETINIB
     Indication: MALIGNANT MELANOMA
     Dosage: IN THE BEGINNING 3 TIMES A DAY, THEN DOSE REDUCED
     Route: 048
     Dates: start: 20191102, end: 20200505
  2. ZELBORAF [Suspect]
     Active Substance: VEMURAFENIB
     Indication: MALIGNANT MELANOMA
     Dosage: 2X 4 DOSE FORMS PER DAY
     Route: 065
     Dates: start: 20191102, end: 20200505
  3. PALLADON [Concomitant]
     Active Substance: HYDROMORPHONE
     Indication: MALIGNANT MELANOMA
     Dosage: IN THE BEGINNING 3 TIMES A DAY, THEN REDUCED TO 1 TIME PER DAY
     Route: 048
     Dates: start: 20191025, end: 20200511

REACTIONS (2)
  - Rash [Recovered/Resolved with Sequelae]
  - Skin exfoliation [Recovered/Resolved with Sequelae]

NARRATIVE: CASE EVENT DATE: 20200227
